FAERS Safety Report 5262673-3 (Version None)
Quarter: 2007Q1

REPORT INFORMATION
  Report Type: 
  Country: None (occurrence: None)
  Receive Date: 20070312
  Receipt Date: 20070228
  Transmission Date: 20070707
  Serious: Yes (Hospitalization)
  Sender: FDA-Public Use
  Company Number: US-MERCK-0703USA00787

PATIENT
  Age: 56 Year
  Sex: Male

DRUGS (19)
  1. PREVACID [Concomitant]
     Route: 065
  2. ASPIRIN [Concomitant]
     Route: 065
  3. MICRO-K [Concomitant]
     Route: 065
  4. IMDUR [Concomitant]
     Route: 065
  5. PLAVIX [Concomitant]
     Route: 065
  6. GLUCOTROL XL [Concomitant]
     Route: 065
  7. HYDROCHLOROTHIAZIDE [Concomitant]
     Route: 065
  8. BUMEX [Concomitant]
     Route: 065
  9. BUMEX [Concomitant]
     Route: 065
  10. ALDACTONE [Concomitant]
     Route: 065
  11. ADVAIR DISKUS 100/50 [Concomitant]
  12. HUMULIN 70/30 [Concomitant]
     Route: 065
  13. HUMULIN 70/30 [Concomitant]
     Route: 065
  14. HUMULIN 70/30 [Concomitant]
     Route: 065
  15. VANCOMYCIN [Concomitant]
     Indication: CELLULITIS
     Route: 065
  16. ZOCOR [Suspect]
     Route: 065
     Dates: end: 20050805
  17. NITROGLYCERIN [Concomitant]
     Route: 065
  18. LEVAQUIN [Concomitant]
     Route: 065
  19. ATENOLOL [Concomitant]
     Route: 065

REACTIONS (5)
  - BLOOD CREATINE PHOSPHOKINASE INCREASED [None]
  - BRAIN NATRIURETIC PEPTIDE INCREASED [None]
  - BUNDLE BRANCH BLOCK LEFT [None]
  - OEDEMA PERIPHERAL [None]
  - PANNICULITIS [None]
